FAERS Safety Report 8622740-0 (Version None)
Quarter: 2012Q3

REPORT INFORMATION
  Report Type: 
  Country: None (occurrence: None)
  Receive Date: 20120810
  Receipt Date: 20120716
  Transmission Date: 20120928
  Serious: Yes (Hospitalization, Other)
  Sender: FDA-Public Use
  Company Number: 2012P1050076

PATIENT
  Age: 82 Year
  Sex: Female

DRUGS (8)
  1. TAMOXIFEN CITRATE [Concomitant]
  2. SPIRIVA [Concomitant]
  3. LANOXIN [Suspect]
     Indication: CARDIAC FAILURE
     Dosage: 0.125 MG;QD;PO
     Route: 048
     Dates: start: 20070101, end: 20120630
  4. INSULIN [Concomitant]
  5. COUMADIN [Concomitant]
  6. TAPAZOLE [Concomitant]
  7. FLUTICASONE PROPIONATE/SALMETEROL [Concomitant]
  8. LASIX [Concomitant]

REACTIONS (6)
  - OXYGEN SATURATION DECREASED [None]
  - NAUSEA [None]
  - BLOOD PRESSURE DIASTOLIC DECREASED [None]
  - CARDIOACTIVE DRUG LEVEL INCREASED [None]
  - TOXICITY TO VARIOUS AGENTS [None]
  - DYSPNOEA [None]
